FAERS Safety Report 8476059-1 (Version None)
Quarter: 2012Q2

REPORT INFORMATION
  Report Type: 
  Country: None (occurrence: None)
  Receive Date: 20120402
  Receipt Date: 20110322
  Transmission Date: 20120825
  Serious: Yes (Hospitalization, Disabling, Other)
  Sender: FDA-Public Use
  Company Number: 272624USA

PATIENT
  Sex: Female

DRUGS (6)
  1. ALENDRONATE SODIUM [Suspect]
     Indication: PROPHYLAXIS
  2. ALENDRONATE SODIUM [Suspect]
     Indication: OSTEOPOROSIS PROPHYLAXIS
  3. ALENDRONATE SODIUM [Suspect]
     Indication: OSTEOPENIA
  4. ALENDRONATE SODIUM [Suspect]
     Indication: OSTEOPENIA
  5. ALENDRONATE SODIUM [Suspect]
     Indication: PROPHYLAXIS
  6. ALENDRONATE SODIUM [Suspect]
     Indication: OSTEOPOROSIS PROPHYLAXIS

REACTIONS (1)
  - JAW DISORDER [None]
